FAERS Safety Report 6379993-1 (Version None)
Quarter: 2009Q3

REPORT INFORMATION
  Report Type: 
  Country: None (occurrence: None)
  Receive Date: 20090928
  Receipt Date: 20090831
  Transmission Date: 20100115
  Serious: Yes (Life-Threatening)
  Sender: FDA-Public Use
  Company Number: NZ-ASTRAZENECA-2009SE14362

PATIENT
  Age: 22831 Day
  Sex: Female

DRUGS (1)
  1. BUDESONIDE [Suspect]
     Dosage: 200 RG
     Route: 055
     Dates: start: 20020226, end: 20020226

REACTIONS (1)
  - ANAPHYLACTIC REACTION [None]
